FAERS Safety Report 10043006 (Version 2)
Quarter: 2014Q2

REPORT INFORMATION
  Report Type: Report from Study
  Country: US (occurrence: US)
  Receive Date: 20140328
  Receipt Date: 20140512
  Transmission Date: 20141212
  Serious: Yes (Other)
  Sender: FDA-Public Use
  Company Number: US-BIOGENIDEC-2014BI028118

PATIENT
  Age: 56 Year
  Sex: Male
  Weight: 104 kg

DRUGS (17)
  1. TYSABRI [Suspect]
     Indication: MULTIPLE SCLEROSIS
     Route: 042
     Dates: start: 20120814, end: 20140124
  2. TYSABRI [Suspect]
     Indication: MULTIPLE SCLEROSIS
     Route: 042
     Dates: start: 201402, end: 201403
  3. COPAXONE [Concomitant]
  4. BETASERON [Concomitant]
  5. BUPROPION [Concomitant]
     Dates: start: 2013
  6. BUPROPION [Concomitant]
     Dates: start: 201401
  7. SYNTHROID [Concomitant]
  8. BACLOFEN [Concomitant]
     Route: 048
  9. GABAPENTIN [Concomitant]
  10. ADDERALL XR [Concomitant]
     Route: 048
  11. AMANTADINE [Concomitant]
     Route: 048
  12. ABILIFY [Concomitant]
     Route: 048
  13. ANDROGEL [Concomitant]
     Route: 061
  14. DIOVAN [Concomitant]
     Route: 048
  15. CYMBALTA [Concomitant]
     Route: 048
  16. TIZANIDINE [Concomitant]
     Route: 048
  17. EFFEXOR [Concomitant]

REACTIONS (2)
  - Prescribed underdose [Recovered/Resolved]
  - Convulsion [Recovered/Resolved]
